FAERS Safety Report 13666242 (Version 1)
Quarter: 2017Q2

REPORT INFORMATION
  Report Type: Spontaneous
  Country: US (occurrence: US)
  Receive Date: 20170619
  Receipt Date: 20170619
  Transmission Date: 20170830
  Serious: No
  Sender: FDA-Public Use
  Company Number: US-ROCHE-665849

PATIENT
  Age: 53 Year
  Sex: Female
  Weight: 60.3 kg

DRUGS (3)
  1. XELODA [Suspect]
     Active Substance: CAPECITABINE
     Route: 048
     Dates: start: 20091123, end: 20091207
  2. XELODA [Suspect]
     Active Substance: CAPECITABINE
     Indication: BREAST CANCER STAGE IV
     Route: 048
     Dates: start: 20091021, end: 20091104
  3. XELODA [Suspect]
     Active Substance: CAPECITABINE
     Route: 048
     Dates: start: 20091222, end: 20100201

REACTIONS (17)
  - Paraesthesia [Recovered/Resolved]
  - Stomatitis [Recovered/Resolved]
  - Fatigue [Recovered/Resolved]
  - Pyrexia [Recovered/Resolved]
  - Mucosal inflammation [Unknown]
  - Muscle spasms [Unknown]
  - Ill-defined disorder [Recovered/Resolved]
  - Hepatic enzyme increased [Unknown]
  - Tooth discolouration [Not Recovered/Not Resolved]
  - Decreased appetite [Recovered/Resolved]
  - Dyspepsia [Unknown]
  - Device failure [Not Recovered/Not Resolved]
  - Diarrhoea [Unknown]
  - Pruritus [Unknown]
  - Nausea [Unknown]
  - Malaise [Recovered/Resolved]
  - Fatigue [Recovered/Resolved]

NARRATIVE: CASE EVENT DATE: 20091027
